FAERS Safety Report 21849530 (Version 2)
Quarter: 2023Q1

REPORT INFORMATION
  Report Type: Spontaneous
  Country: US (occurrence: US)
  Receive Date: 20230111
  Receipt Date: 20230113
  Transmission Date: 20230417
  Serious: Yes (Hospitalization)
  Sender: FDA-Public Use
  Company Number: US RIGEL Pharmaceuticals, INC -2023FOS000011

PATIENT
  Sex: Female
  Weight: 90.703 kg

DRUGS (1)
  1. TAVALISSE [Suspect]
     Active Substance: FOSTAMATINIB
     Indication: Immune thrombocytopenia
     Dosage: 150 MG, BID
     Route: 048
     Dates: start: 20200528

REACTIONS (3)
  - Fungal infection [Unknown]
  - Cough [Unknown]
  - Product dose omission issue [Unknown]
